FAERS Safety Report 5142916-7 (Version None)
Quarter: 2006Q4

REPORT INFORMATION
  Report Type: 
  Country: None (occurrence: None)
  Receive Date: 20061030
  Receipt Date: 20061018
  Transmission Date: 20070319
  Serious: Yes (Hospitalization)
  Sender: FDA-Public Use
  Company Number: E2090-00113-SPO-JP

PATIENT
  Age: 70 Year
  Sex: Female

DRUGS (4)
  1. ZONISAMIDE [Suspect]
     Indication: ENCEPHALITIS HERPES
     Dosage: ORAL
     Route: 048
     Dates: start: 20060909
  2. METHYCOBAL (MECOBALAMIN) [Concomitant]
  3. AMOXICILLIN [Concomitant]
  4. DASEN (SERRAPEPTASE) [Concomitant]

REACTIONS (2)
  - PYREXIA [None]
  - RASH [None]
